FAERS Safety Report 19332026 (Version 1)
Quarter: 2021Q2

REPORT INFORMATION
  Report Type: Spontaneous
  Country: US (occurrence: US)
  Receive Date: 20210529
  Receipt Date: 20210529
  Transmission Date: 20210717
  Serious: Yes (Other)
  Sender: FDA-Public Use
  Company Number: US-INSUD PHARMA-2105US00599

PATIENT

DRUGS (1)
  1. BENZNIDAZOLE. [Suspect]
     Active Substance: BENZNIDAZOLE
     Indication: PRODUCT USED FOR UNKNOWN INDICATION
     Dosage: 150 MILLIGRAM, EVERY 12 HOURS
     Route: 048
     Dates: start: 20210510, end: 20210517

REACTIONS (5)
  - Rash erythematous [Recovering/Resolving]
  - Dyspnoea [Recovered/Resolved]
  - Hypersensitivity [Recovering/Resolving]
  - Anaphylactic shock [Recovered/Resolved]
  - Intentional product use issue [Unknown]

NARRATIVE: CASE EVENT DATE: 20210517
